FAERS Safety Report 12253891 (Version 1)
Quarter: 2016Q2

REPORT INFORMATION
  Report Type: Spontaneous
  Country: US (occurrence: US)
  Receive Date: 20160411
  Receipt Date: 20160411
  Transmission Date: 20160815
  Serious: Yes (Other)
  Sender: FDA-Public Use
  Company Number: US-FRI-1000083780

PATIENT
  Sex: Male

DRUGS (1)
  1. NAMZARIC [Suspect]
     Active Substance: DONEPEZIL HYDROCHLORIDE\MEMANTINE HYDROCHLORIDE
     Route: 048

REACTIONS (5)
  - Syncope [Unknown]
  - Confusional state [Unknown]
  - Intentional product misuse [Recovered/Resolved]
  - Blindness [Unknown]
  - Dyspnoea [Unknown]
